FAERS Safety Report 19987952 (Version 1)
Quarter: 2021Q4

REPORT INFORMATION
  Report Type: Spontaneous
  Country: JP (occurrence: JP)
  Receive Date: 20211023
  Receipt Date: 20211023
  Transmission Date: 20220303
  Serious: Yes (Hospitalization)
  Sender: FDA-Public Use
  Company Number: JP-JNJFOC-20211030240

PATIENT
  Age: 7 Decade
  Sex: Male

DRUGS (3)
  1. OPSUMIT [Suspect]
     Active Substance: MACITENTAN
     Indication: Pulmonary arterial hypertension
     Route: 048
     Dates: start: 20211002, end: 20211004
  2. UNSPECIFIED INGREDIENT [Concomitant]
     Active Substance: UNSPECIFIED INGREDIENT
     Indication: Respiratory disorder
     Dosage: DOSE UNKNOWN
     Route: 065
     Dates: start: 202109
  3. OXYGEN [Concomitant]
     Active Substance: OXYGEN
     Indication: Respiratory disorder
     Dosage: 2L PER MIN
     Route: 055

REACTIONS (3)
  - Oxygen saturation decreased [Not Recovered/Not Resolved]
  - Prescribed underdose [Unknown]
  - Off label use [Unknown]

NARRATIVE: CASE EVENT DATE: 20211002
